FAERS Safety Report 7117724-8 (Version None)
Quarter: 2010Q4

REPORT INFORMATION
  Report Type: 
  Country: None (occurrence: None)
  Receive Date: 20101123
  Receipt Date: 20101111
  Transmission Date: 20110411
  Serious: No
  Sender: FDA-Public Use
  Company Number: US-BIOGENIDEC-2010BI032607

PATIENT
  Sex: Female

DRUGS (2)
  1. TYSABRI [Suspect]
     Indication: MULTIPLE SCLEROSIS
     Route: 042
     Dates: start: 20080728, end: 20100915
  2. SYNTHROID [Concomitant]
     Indication: HYPOTHYROIDISM

REACTIONS (8)
  - BLOOD THYROID STIMULATING HORMONE DECREASED [None]
  - CD4 LYMPHOCYTES ABNORMAL [None]
  - CD4 LYMPHOCYTES DECREASED [None]
  - CHRONIC SINUSITIS [None]
  - HEADACHE [None]
  - IMMUNE SYSTEM DISORDER [None]
  - T-LYMPHOCYTE COUNT DECREASED [None]
  - WHITE BLOOD CELL COUNT DECREASED [None]
